FAERS Safety Report 25943534 (Version 2)
Quarter: 2025Q4

REPORT INFORMATION
  Report Type: Spontaneous
  Country: JP (occurrence: JP)
  Receive Date: 20251021
  Receipt Date: 20251031
  Transmission Date: 20260118
  Serious: Yes (Other)
  Sender: GILEAD
  Company Number: JP-GILEAD-2025-0730342

PATIENT
  Age: 49 Year
  Sex: Male

DRUGS (1)
  1. VEKLURY [Suspect]
     Active Substance: REMDESIVIR
     Indication: COVID-19 pneumonia
     Dosage: UNK
     Route: 065
     Dates: start: 20250911, end: 20250913

REACTIONS (7)
  - Cardiac ventricular thrombosis [Unknown]
  - Urticaria [Recovering/Resolving]
  - Eosinophil count increased [Recovering/Resolving]
  - Body tinea [Recovering/Resolving]
  - Hepatic function abnormal [Recovered/Resolved]
  - Fibrin D dimer increased [Recovered/Resolved]
  - Blood cholesterol increased [Recovered/Resolved]

NARRATIVE: CASE EVENT DATE: 20250913
